FAERS Safety Report 10362226 (Version 4)
Quarter: 2014Q4

REPORT INFORMATION
  Report Type: Report from Study
  Country: CN (occurrence: CN)
  Receive Date: 20140805
  Receipt Date: 20141230
  Transmission Date: 20150528
  Serious: Yes (Other)
  Sender: FDA-Public Use
  Company Number: CN-PFIZER INC-2014210287

PATIENT
  Age: 50 Year
  Sex: Female
  Weight: 76 kg

DRUGS (4)
  1. SUNITINIB MALATE [Suspect]
     Active Substance: SUNITINIB MALATE
     Indication: RENAL CELL CARCINOMA
     Dosage: 50 MG, ONCE DAILY, SCHEDULE 4/2
     Route: 048
     Dates: start: 20130521, end: 20140321
  2. ZHENG YUAN [Concomitant]
     Indication: BLOOD THYROID STIMULATING HORMONE INCREASED
     Dosage: 0.5 MG, 3X/DAY
     Route: 048
     Dates: start: 20140208
  3. SMECTITE [Concomitant]
     Active Substance: MONTMORILLONITE
     Indication: DIARRHOEA
     Dosage: 1 POCKETFUL, THREE TIMES DAILY
     Dates: start: 20131125, end: 20131130
  4. EUTHYROX [Concomitant]
     Active Substance: LEVOTHYROXINE SODIUM
     Indication: BLOOD THYROID STIMULATING HORMONE INCREASED
     Dosage: 50 UG, 1X/DAY
     Dates: start: 20140208

REACTIONS (2)
  - Second primary malignancy [Unknown]
  - Pituitary tumour [Unknown]

NARRATIVE: CASE EVENT DATE: 20140313
